FAERS Safety Report 17858681 (Version 1)
Quarter: 2020Q2

REPORT INFORMATION
  Report Type: Report from Study
  Country: None (occurrence: AE)
  Receive Date: 20200604
  Receipt Date: 20200604
  Transmission Date: 20200714
  Serious: No
  Sender: FDA-Public Use
  Company Number: US-US WORLDMEDS, LLC-USW201911-002268

PATIENT
  Sex: Female
  Weight: 88.9 kg

DRUGS (1)
  1. APOKYN [Suspect]
     Active Substance: APOMORPHINE HYDROCHLORIDE
     Indication: PARKINSON^S DISEASE
     Dosage: DO NOT EXCEED 5 DOSES PER 24 HOURS.
     Route: 058

REACTIONS (2)
  - Nausea [Unknown]
  - Alopecia [Unknown]
